FAERS Safety Report 21945989 (Version 1)
Quarter: 2023Q1

REPORT INFORMATION
  Report Type: Spontaneous
  Country: US (occurrence: US)
  Receive Date: 20230202
  Receipt Date: 20230202
  Transmission Date: 20230417
  Serious: No
  Sender: FDA-Public Use
  Company Number: US-SANOFI-01469343

PATIENT
  Sex: Male

DRUGS (1)
  1. DUPIXENT [Suspect]
     Active Substance: DUPILUMAB
     Indication: Nasal polyps
     Dosage: 300 MG QOW

REACTIONS (6)
  - SARS-CoV-2 test positive [Unknown]
  - Joint stiffness [Unknown]
  - Arthralgia [Unknown]
  - Injection site bruising [Unknown]
  - Limb operation [Unknown]
  - Injection site pain [Unknown]
